FAERS Safety Report 12483367 (Version 1)
Quarter: 2016Q2

REPORT INFORMATION
  Report Type: Spontaneous
  Country: PT (occurrence: PT)
  Receive Date: 20160621
  Receipt Date: 20160621
  Transmission Date: 20160815
  Serious: Yes (Hospitalization, Other)
  Sender: FDA-Public Use
  Company Number: PT-ALEMBIC PHARMACUETICALS LIMITED-2016SCAL000453

PATIENT

DRUGS (1)
  1. LITHIUM CARBONATE. [Suspect]
     Active Substance: LITHIUM CARBONATE
     Indication: PRODUCT USED FOR UNKNOWN INDICATION
     Dosage: UNK

REACTIONS (14)
  - Metabolic disorder [Recovering/Resolving]
  - Affect lability [Recovering/Resolving]
  - Generalised tonic-clonic seizure [Recovering/Resolving]
  - Electrolyte imbalance [Recovering/Resolving]
  - Echolalia [Recovering/Resolving]
  - Toxicity to various agents [Recovering/Resolving]
  - Seizure [Recovering/Resolving]
  - Condition aggravated [Recovering/Resolving]
  - Catatonia [Recovering/Resolving]
  - Nervous system disorder [Recovering/Resolving]
  - Confusional state [Recovering/Resolving]
  - Urinary incontinence [Recovering/Resolving]
  - Acute kidney injury [Recovering/Resolving]
  - Cardiovascular insufficiency [Recovering/Resolving]
